FAERS Safety Report 18021786 (Version 7)
Quarter: 2021Q4

REPORT INFORMATION
  Report Type: Other
  Country: FR (occurrence: FR)
  Receive Date: 20200715
  Receipt Date: 20211019
  Transmission Date: 20220303
  Serious: Yes (Death, Hospitalization, Other)
  Sender: FDA-Public Use
  Company Number: FR-ROCHE-2634455

PATIENT
  Age: 64 Year
  Sex: Male
  Weight: 75 kg

DRUGS (13)
  1. ATEZOLIZUMAB [Suspect]
     Active Substance: ATEZOLIZUMAB
     Indication: Non-small cell lung cancer
     Dosage: SUBSEQUENT DOSES OF ATEZOLIZUMAB 09/JAN/2020, 30/JAN/2020, 20/FEB/2020, 12/MAR/2020, 01/MAR/2020.?ON
     Route: 041
     Dates: start: 20191219
  2. CLAFORAN [Concomitant]
     Active Substance: CEFOTAXIME SODIUM
     Indication: Dyspnoea
     Dates: start: 20200524, end: 20200604
  3. SPIRAMYCIN [Concomitant]
     Active Substance: SPIRAMYCIN
     Indication: Dyspnoea
     Dates: start: 20200525, end: 20200528
  4. SPIRAMYCIN [Concomitant]
     Active Substance: SPIRAMYCIN
     Dates: start: 20200524, end: 20200525
  5. BACTRIM [Concomitant]
     Active Substance: SULFAMETHOXAZOLE\TRIMETHOPRIM
     Indication: Dyspnoea
     Route: 042
     Dates: start: 20200526, end: 20200604
  6. LINEZOLID [Concomitant]
     Active Substance: LINEZOLID
     Indication: Dyspnoea
     Dates: start: 20200604, end: 20200609
  7. CEFEPIME HYDROCHLORIDE [Concomitant]
     Active Substance: CEFEPIME HYDROCHLORIDE
     Indication: Dyspnoea
     Dates: start: 20200604, end: 20200609
  8. PIPERACILLIN SODIUM\TAZOBACTAM SODIUM [Concomitant]
     Active Substance: PIPERACILLIN SODIUM\TAZOBACTAM SODIUM
     Dates: start: 20200525, end: 20200528
  9. NITROGEN DIOXIDE (UNK INGREDIENTS) [Concomitant]
     Indication: Pneumonia
     Dates: start: 20200604, end: 20200609
  10. UNSPECIFIED INGREDIENT [Concomitant]
     Active Substance: UNSPECIFIED INGREDIENT
     Indication: Pneumonia
     Dates: start: 20200524, end: 20200609
  11. AVASTIN [Concomitant]
     Active Substance: BEVACIZUMAB
     Indication: Neoplasm malignant
  12. CISPLATIN [Concomitant]
     Active Substance: CISPLATIN
     Indication: Neoplasm malignant
  13. ALIMTA [Concomitant]
     Active Substance: PEMETREXED DISODIUM
     Indication: Neoplasm malignant

REACTIONS (5)
  - Diabetes mellitus [Not Recovered/Not Resolved]
  - Atrial flutter [Not Recovered/Not Resolved]
  - Colitis [Recovered/Resolved]
  - Rhinitis [Not Recovered/Not Resolved]
  - Musculoskeletal chest pain [Not Recovered/Not Resolved]

NARRATIVE: CASE EVENT DATE: 20200115
